FAERS Safety Report 25364170 (Version 1)
Quarter: 2025Q2

REPORT INFORMATION
  Report Type: Spontaneous
  Country: US (occurrence: US)
  Receive Date: 20250527
  Receipt Date: 20250527
  Transmission Date: 20250717
  Serious: Yes (Other)
  Sender: BAYER HEALTHCARE LLC
  Company Number: US-BAYER-2025A067340

PATIENT
  Sex: Male

DRUGS (2)
  1. LOTRIMIN ANTIFUNGAL (MICONAZOLE NITRATE) [Suspect]
     Active Substance: MICONAZOLE NITRATE
  2. TINACTIN [Suspect]
     Active Substance: TOLNAFTATE

REACTIONS (5)
  - Mesothelioma malignant [None]
  - Exposure to chemical pollution [None]
  - Injury [None]
  - Pain [None]
  - Impaired work ability [None]
